FAERS Safety Report 23879367 (Version 1)
Quarter: 2024Q2

REPORT INFORMATION
  Report Type: Spontaneous
  Country: US (occurrence: None)
  Receive Date: 20240520
  Receipt Date: 20240520
  Transmission Date: 20240716
  Serious: Yes (Hospitalization)
  Sender: FDA-Public Use
  Company Number: None

PATIENT
  Sex: Female

DRUGS (11)
  1. VELTASSA [Suspect]
     Active Substance: PATIROMER
     Indication: Hyperkalaemia
     Dosage: FREQ: DOSSOLVE 1 PACKET IN 1/3 CUP OF WATER AND TAKE BY MOUTH DAILY AFTER LUNCH
     Route: 048
     Dates: start: 20220621
  2. AZITHROMYCIN [Concomitant]
  3. CHLORTHALID [Concomitant]
  4. CYCLOSPORINE [Concomitant]
  5. FERROUS SULFATE [Concomitant]
     Active Substance: FERROUS SULFATE
  6. HYDRALAZINE [Concomitant]
     Active Substance: HYDRALAZINE HYDROCHLORIDE
  7. LOKELMA [Concomitant]
     Active Substance: SODIUM ZIRCONIUM CYCLOSILICATE
  8. MYCOPHENOLATE MOFETIL [Concomitant]
     Active Substance: MYCOPHENOLATE MOFETIL
  9. OMEGA-3 ACIDS [Concomitant]
     Active Substance: OMEGA-3 FATTY ACIDS
  10. REPAGLINIDE [Concomitant]
     Active Substance: REPAGLINIDE
  11. SIROLIMUS [Concomitant]

REACTIONS (1)
  - Hospitalisation [None]
